FAERS Safety Report 14637426 (Version 2)
Quarter: 2019Q1

REPORT INFORMATION
  Report Type: Spontaneous
  Country: US (occurrence: US)
  Receive Date: 20180314
  Receipt Date: 20190225
  Transmission Date: 20190417
  Serious: No
  Sender: FDA-Public Use
  Company Number: US-ALLERGAN-1804350US

PATIENT
  Age: 52 Year
  Sex: Female

DRUGS (3)
  1. NORCO [Suspect]
     Active Substance: ACETAMINOPHEN\HYDROCODONE BITARTRATE
     Indication: PAIN
     Dosage: 1 10/325 TABLET TID AND QID
     Route: 048
     Dates: start: 2014
  2. WARFARIN [Concomitant]
     Active Substance: WARFARIN
     Indication: AORTIC VALVE REPLACEMENT
     Dosage: 5 MG SIX DAYS PER WEEK AND 2.5 MG ON THE 7TH DAY
     Route: 048
     Dates: start: 2014
  3. WARFARIN [Concomitant]
     Active Substance: WARFARIN
     Dosage: 5 MG MON, WED, FRI, AND SAT AND 2.5 MG ON TUE, THU AND SUN
     Route: 048
     Dates: start: 20180122

REACTIONS (10)
  - Product dispensing error [Unknown]
  - Joint injury [Not Recovered/Not Resolved]
  - Dyspnoea [Not Recovered/Not Resolved]
  - Wrong technique in product usage process [Unknown]
  - International normalised ratio increased [Unknown]
  - Cough [Recovered/Resolved]
  - Dry throat [Not Recovered/Not Resolved]
  - Discomfort [Not Recovered/Not Resolved]
  - Influenza [Recovered/Resolved]
  - Therapeutic response decreased [Unknown]

NARRATIVE: CASE EVENT DATE: 20180104
